FAERS Safety Report 11147343 (Version 4)
Quarter: 2015Q3

REPORT INFORMATION
  Report Type: Spontaneous
  Country: JP (occurrence: JP)
  Receive Date: 20150528
  Receipt Date: 20150821
  Transmission Date: 20151125
  Serious: Yes (Other)
  Sender: FDA-Public Use
  Company Number: JP-BRISTOL-MYERS SQUIBB COMPANY-BMS-2015-034207

PATIENT
  Age: 64 Year
  Sex: Male
  Weight: 40 kg

DRUGS (15)
  1. FEBURIC [Concomitant]
     Active Substance: FEBUXOSTAT
     Indication: HYPERURICAEMIA
     Dosage: 20 MG, QD
     Route: 048
     Dates: start: 2005
  2. NEXIUM [Concomitant]
     Active Substance: ESOMEPRAZOLE MAGNESIUM
     Indication: GASTRITIS
     Dosage: 10 MG, QD
     Route: 048
     Dates: start: 20140417
  3. ERBITUX [Suspect]
     Active Substance: CETUXIMAB
     Dosage: UNK, QWK
     Route: 041
     Dates: start: 20150422
  4. LIPITOR [Concomitant]
     Active Substance: ATORVASTATIN CALCIUM
     Indication: HYPERCHOLESTEROLAEMIA
     Dosage: 10 MG, QD
     Route: 048
     Dates: start: 2005
  5. ERBITUX [Suspect]
     Active Substance: CETUXIMAB
     Indication: HYPOPHARYNGEAL CANCER
     Dosage: UNK, QWK
     Route: 041
     Dates: start: 20150408
  6. SEIBULE [Concomitant]
     Active Substance: MIGLITOL
     Indication: DIABETES MELLITUS
     Dosage: 75 MG, TID
     Route: 048
     Dates: start: 2005
  7. ERBITUX [Suspect]
     Active Substance: CETUXIMAB
     Dosage: UNK, QWK
     Route: 041
     Dates: start: 20150415
  8. ERBITUX [Suspect]
     Active Substance: CETUXIMAB
     Dosage: UNK, QWK
     Route: 041
     Dates: start: 20150430
  9. MINOMYCIN [Concomitant]
     Active Substance: MINOCYCLINE HYDROCHLORIDE
     Indication: PRODUCT USED FOR UNKNOWN INDICATION
     Dosage: 10 MG, UNK
     Route: 041
     Dates: start: 20150408, end: 20150421
  10. DIART [Concomitant]
     Active Substance: AZOSEMIDE
     Indication: POLYURIA
     Dosage: 30 MG, QD
     Route: 048
     Dates: start: 2005
  11. ZETIA [Concomitant]
     Active Substance: EZETIMIBE
     Indication: HYPERLIPIDAEMIA
     Dosage: 10 MG, QD
     Route: 048
     Dates: start: 2005
  12. PREDONINE [Suspect]
     Active Substance: PREDNISOLONE\PREDNISOLONE ACETATE\PREDNISOLONE SODIUM SUCCINATE
     Indication: GLOMERULONEPHRITIS MEMBRANOUS
     Dosage: UNK
     Route: 048
     Dates: start: 201006
  13. PONSTEL [Suspect]
     Active Substance: MEFENAMIC ACID
     Indication: ANALGESIC THERAPY
     Dosage: 8 ML, BID
     Route: 048
     Dates: end: 20150507
  14. WARFARIN [Suspect]
     Active Substance: WARFARIN
     Indication: PULMONARY THROMBOSIS
     Dosage: 2 MG, QD
     Route: 048
     Dates: start: 2005
  15. NU-LOTAN [Concomitant]
     Active Substance: LOSARTAN POTASSIUM
     Indication: DIABETIC NEPHROPATHY
     Route: 048

REACTIONS (5)
  - Diarrhoea [Recovering/Resolving]
  - Stomatitis [Recovering/Resolving]
  - Paronychia [Unknown]
  - Oesophageal ulcer [Recovered/Resolved]
  - Rash [Recovering/Resolving]

NARRATIVE: CASE EVENT DATE: 20150413
